FAERS Safety Report 7098869-8 (Version None)
Quarter: 2010Q4

REPORT INFORMATION
  Report Type: 
  Country: None (occurrence: None)
  Receive Date: 20101112
  Receipt Date: 20101104
  Transmission Date: 20110411
  Serious: Yes (Hospitalization, Other)
  Sender: FDA-Public Use
  Company Number: US-TEVA-254170USA

PATIENT
  Sex: Male

DRUGS (3)
  1. CLARAVIS [Suspect]
     Route: 048
     Dates: end: 20100901
  2. CLARAVIS [Suspect]
     Route: 048
  3. RISPERIDONE [Concomitant]

REACTIONS (1)
  - SUICIDE ATTEMPT [None]
